FAERS Safety Report 7056641-9 (Version None)
Quarter: 2010Q4

REPORT INFORMATION
  Report Type: 
  Country: None (occurrence: None)
  Receive Date: 20101019
  Receipt Date: 20101006
  Transmission Date: 20110411
  Serious: Yes (Hospitalization)
  Sender: FDA-Public Use
  Company Number: KV201000320

PATIENT
  Age: 15 Month
  Sex: Female

DRUGS (3)
  1. PREDNISOLONE [Suspect]
     Indication: ACUTE LYMPHOCYTIC LEUKAEMIA
     Dosage: 10 MG
     Dates: start: 20090109
  2. METHOTREXATE [Suspect]
     Indication: ACUTE LYMPHOCYTIC LEUKAEMIA
     Dosage: 8 MG
     Dates: start: 20090109
  3. VINCRISTINE [Suspect]
     Indication: ACUTE LYMPHOCYTIC LEUKAEMIA
     Dosage: 0.36 MG
     Dates: start: 20090109

REACTIONS (6)
  - ANAL ABSCESS [None]
  - GASTROENTERITIS PSEUDOMONAS [None]
  - HAEMOGLOBIN DECREASED [None]
  - PLATELET COUNT DECREASED [None]
  - VIITH NERVE PARALYSIS [None]
  - WHITE BLOOD CELL COUNT DECREASED [None]
